FAERS Safety Report 17839199 (Version 3)
Quarter: 2021Q1

REPORT INFORMATION
  Report Type: Spontaneous
  Country: US (occurrence: US)
  Receive Date: 20200529
  Receipt Date: 20210316
  Transmission Date: 20210419
  Serious: Yes (Hospitalization, Other)
  Sender: FDA-Public Use
  Company Number: US-009507513-2005USA002623

PATIENT
  Age: 58 Year
  Sex: Female
  Weight: 126.98 kg

DRUGS (3)
  1. KEYTRUDA [Suspect]
     Active Substance: PEMBROLIZUMAB
     Indication: CERVIX CARCINOMA STAGE II
     Dosage: 200 MILLIGRAMS, INTRAVENOUSLY, EVERY 21 DAYS
     Route: 042
     Dates: start: 20190626, end: 20200415
  2. XARELTO [Concomitant]
     Active Substance: RIVAROXABAN
  3. LEVOTHYROXINE SODIUM. [Concomitant]
     Active Substance: LEVOTHYROXINE SODIUM

REACTIONS (4)
  - Fatigue [Unknown]
  - Inappropriate schedule of product administration [Unknown]
  - Pemphigoid [Unknown]
  - Weight increased [Unknown]

NARRATIVE: CASE EVENT DATE: 202003
